FAERS Safety Report 8891301 (Version 3)
Quarter: 2012Q4

REPORT INFORMATION
  Report Type: 
  Country: DE (occurrence: GB)
  Receive Date: 20121107
  Receipt Date: 20121217
  Transmission Date: 20130627
  Serious: Yes (Death, Other)
  Sender: FDA-Public Use
  Company Number: GB-AMGEN-GBRSP2012070480

PATIENT
  Age: 3 Year
  Sex: Female

DRUGS (2)
  1. PROLIA [Suspect]
     Indication: HYPERCALCAEMIA
     Dosage: 0.13 mg/kg, UNK
  2. PROLIA [Suspect]
     Dosage: 0.5 mg/kg, UNK

REACTIONS (3)
  - Death [Fatal]
  - Pulmonary hypertension [Unknown]
  - Hypercalcaemia [Recovered/Resolved]
